FAERS Safety Report 7903594-4 (Version None)
Quarter: 2011Q4

REPORT INFORMATION
  Report Type: 
  Country: None (occurrence: None)
  Receive Date: 20111109
  Receipt Date: 20111027
  Transmission Date: 20120403
  Serious: Yes (Hospitalization, Other)
  Sender: FDA-Public Use
  Company Number: US-ELI_LILLY_AND_COMPANY-US201111001771

PATIENT
  Sex: Female

DRUGS (10)
  1. CENTRUM SILVER [Concomitant]
  2. TENORMIN [Concomitant]
  3. TYLENOL (CAPLET) [Concomitant]
     Indication: ARTHRITIS
     Dosage: 1000 MG, QD
  4. FLONASE [Concomitant]
  5. ANTIHYPERTENSIVES [Concomitant]
     Indication: HYPERTENSION
  6. CALCIUM [Concomitant]
     Dosage: 600 MG, BID
  7. VITAMIN D [Concomitant]
     Dosage: 400 MG, BID
  8. FORTEO [Suspect]
     Indication: OSTEOPOROSIS
     Dosage: 20 UG, QD
     Dates: start: 20110915
  9. LISINOPRIL [Concomitant]
     Indication: HYPERTENSION
  10. ASPIRIN [Concomitant]

REACTIONS (4)
  - RECTAL HAEMORRHAGE [None]
  - HYPOTENSION [None]
  - GASTROINTESTINAL HAEMORRHAGE [None]
  - MALAISE [None]
